FAERS Safety Report 5053906-7 (Version None)
Quarter: 2006Q3

REPORT INFORMATION
  Report Type: 
  Country: None (occurrence: None)
  Receive Date: 20060712
  Receipt Date: 20060629
  Transmission Date: 20061208
  Serious: Yes (Hospitalization, Other)
  Sender: FDA-Public Use
  Company Number: 2006057226

PATIENT
  Age: 73 Year
  Sex: Female
  Weight: 45 kg

DRUGS (13)
  1. ZYVOX [Suspect]
     Indication: DRUG USE FOR UNKNOWN INDICATION
     Dosage: 1200 MG (600 MG, 2 IN 1 D), INTRAVENOUS
     Route: 042
     Dates: start: 20060403, end: 20060414
  2. PAROXETINE [Suspect]
     Indication: DEPRESSION
     Dosage: SEE IMAGE
     Route: 048
     Dates: start: 20060309, end: 20060403
  3. PAROXETINE [Suspect]
     Indication: DEPRESSION
     Dosage: SEE IMAGE
     Route: 048
     Dates: start: 20060404, end: 20060405
  4. PAROXETINE [Suspect]
     Indication: DEPRESSION
     Dosage: SEE IMAGE
     Route: 048
     Dates: start: 20060406, end: 20060408
  5. HEPARIN [Concomitant]
  6. DOMPERIDONE (DOMPERIDONE) [Concomitant]
  7. BISOPROLOL FUMARATE [Concomitant]
  8. LEXOMIL (BROMAZEPAM) [Concomitant]
  9. RIFADIN [Concomitant]
  10. LASIX [Concomitant]
  11. DIAMOX [Concomitant]
  12. ATARAX [Concomitant]
  13. SINTROM (ACENOCUMAROL) [Concomitant]

REACTIONS (13)
  - ASTHENIA [None]
  - BLOOD LACTIC ACID INCREASED [None]
  - BLOOD PRESSURE INCREASED [None]
  - CYANOSIS [None]
  - DIALYSIS [None]
  - DRUG INTERACTION [None]
  - DRUG TOXICITY [None]
  - GAMMA-GLUTAMYLTRANSFERASE INCREASED [None]
  - PANCYTOPENIA [None]
  - RENAL FAILURE [None]
  - VASOCONSTRICTION [None]
  - VERTIGO [None]
  - VOMITING [None]
